FAERS Safety Report 8278233-6 (Version None)
Quarter: 2012Q2

REPORT INFORMATION
  Report Type: 
  Country: None (occurrence: None)
  Receive Date: 20120412
  Receipt Date: 20111201
  Transmission Date: 20120825
  Serious: No
  Sender: FDA-Public Use
  Company Number: US-ASTRAZENECA-2011SE72927

PATIENT
  Sex: Male

DRUGS (11)
  1. FUROSEMIDE [Concomitant]
  2. ZYNOBIM [Concomitant]
  3. ALEGRA [Concomitant]
  4. ASPIRIN [Concomitant]
  5. RAMIPDIL [Concomitant]
  6. NEXIUM [Suspect]
     Indication: GASTROOESOPHAGEAL REFLUX DISEASE
     Route: 048
  7. NOLOGMIN INSULIN REGULAR W13 [Concomitant]
  8. VALIUM [Concomitant]
  9. DISOPROLO [Concomitant]
  10. COMBIVENT [Concomitant]
  11. NITRO PUMP SPRAY [Concomitant]

REACTIONS (2)
  - CONSTIPATION [None]
  - INCORRECT DRUG ADMINISTRATION DURATION [None]
